FAERS Safety Report 5243141-1 (Version None)
Quarter: 2007Q1

REPORT INFORMATION
  Report Type: 
  Country: None (occurrence: None)
  Receive Date: 20070221
  Receipt Date: 20070209
  Transmission Date: 20070707
  Serious: Yes (Hospitalization)
  Sender: FDA-Public Use
  Company Number: US-SHR-US-2007-001210

PATIENT
  Sex: Male

DRUGS (5)
  1. LEUKINE [Suspect]
     Indication: PROSTATE CANCER
     Dosage: 250 A?G/M2, 2X/DAY
     Route: 058
     Dates: start: 20060801, end: 20061001
  2. MITOXANTRONE HCL [Suspect]
     Indication: PROSTATE CANCER
     Dosage: 12 MG/M2, 1X/3 WEEKS
     Route: 042
     Dates: start: 20060801, end: 20061001
  3. KETOCONAZOLE [Suspect]
     Indication: PROSTATE CANCER
     Dosage: 400 MG, 3X/DAY
     Route: 048
     Dates: start: 20060801, end: 20061001
  4. ASCORBIC ACID [Concomitant]
     Dosage: 250 MG, 3X/DAY
     Route: 048
     Dates: start: 20060801, end: 20061001
  5. HYDROCORTISONE [Concomitant]
     Dosage: UNK, 2X/DAY
     Route: 048
     Dates: start: 20060801, end: 20061001

REACTIONS (3)
  - DEHYDRATION [None]
  - FATIGUE [None]
  - MUCOSAL INFLAMMATION [None]
